FAERS Safety Report 8176010-8 (Version None)
Quarter: 2012Q1

REPORT INFORMATION
  Report Type: 
  Country: None (occurrence: None)
  Receive Date: 20120301
  Receipt Date: 20120227
  Transmission Date: 20120608
  Serious: No
  Sender: FDA-Public Use
  Company Number: US-PFIZER INC-K201101194

PATIENT
  Sex: Male
  Weight: 90.703 kg

DRUGS (1)
  1. FLECTOR [Suspect]
     Indication: PRURITUS
     Dosage: UNK PATCH, UNK
     Dates: start: 20110917, end: 20111003

REACTIONS (1)
  - DRUG INEFFECTIVE [None]
